FAERS Safety Report 15748540 (Version 1)
Quarter: 2018Q4

REPORT INFORMATION
  Report Type: Spontaneous
  Country: TR (occurrence: TR)
  Receive Date: 20181221
  Receipt Date: 20181221
  Transmission Date: 20190205
  Serious: Yes (Life-Threatening)
  Sender: FDA-Public Use
  Company Number: TR-TEVA-2018-TR-991045

PATIENT
  Age: 68 Year
  Sex: Female
  Weight: 60 kg

DRUGS (2)
  1. CARBOPLATIN. [Concomitant]
     Active Substance: CARBOPLATIN
     Dosage: 150 MILLIGRAM DAILY; UNKNOWN FORM STRENGTH
     Route: 042
  2. SINDAXEL [Suspect]
     Active Substance: PACLITAXEL
     Indication: PRODUCT USED FOR UNKNOWN INDICATION
     Dosage: SINDAXEL 100 MG/16.7 ML IV CONCENTRATE FOR SOLUTION FOR INFUSION
     Route: 065

REACTIONS (3)
  - Tachycardia [Recovered/Resolved]
  - Hypertension [Recovered/Resolved]
  - Oxygen saturation decreased [Recovered/Resolved]

NARRATIVE: CASE EVENT DATE: 20181031
